FAERS Safety Report 6739957-2 (Version None)
Quarter: 2010Q2

REPORT INFORMATION
  Report Type: 
  Country: None (occurrence: None)
  Receive Date: 20100525
  Receipt Date: 20100520
  Transmission Date: 20101027
  Serious: Yes (Hospitalization)
  Sender: FDA-Public Use
  Company Number: US-BRISTOL-MYERS SQUIBB COMPANY-15067226

PATIENT
  Sex: Male

DRUGS (8)
  1. COUMADIN [Suspect]
     Indication: ANTICOAGULANT THERAPY
     Route: 048
  2. BIOTENE TOOTHPASTE [Interacting]
     Indication: DENTAL CARE
  3. BIOTENE MOUTHWASH [Interacting]
     Indication: DRY MOUTH
  4. LOTENSIN [Interacting]
     Indication: BLOOD PRESSURE ABNORMAL
     Route: 048
  5. CARDIZEM [Interacting]
     Indication: TACHYCARDIA
     Route: 048
  6. NEXIUM [Interacting]
     Indication: GASTROOESOPHAGEAL REFLUX DISEASE
     Dosage: ESOMEPRAZOLE CAPSULE EXTENDED RELEASE
     Route: 048
  7. ALLOPURINOL [Interacting]
     Indication: GOUT
     Route: 048
  8. ASPIRIN [Interacting]
     Route: 048

REACTIONS (5)
  - DIZZINESS [None]
  - DRUG INTERACTION [None]
  - MALAISE [None]
  - NAUSEA [None]
  - TREMOR [None]
